FAERS Safety Report 9283115 (Version 1)
Quarter: 2013Q2

REPORT INFORMATION
  Report Type: Spontaneous
  Country: US (occurrence: US)
  Receive Date: 20130510
  Receipt Date: 20130510
  Transmission Date: 20140414
  Serious: No
  Sender: FDA-Public Use
  Company Number: US-GLAXOSMITHKLINE-A0980988A

PATIENT
  Sex: Female

DRUGS (1)
  1. TYKERB [Suspect]
     Indication: BREAST CANCER FEMALE
     Dosage: 1250MG PER DAY
     Route: 048

REACTIONS (9)
  - Local swelling [Unknown]
  - Fatigue [Unknown]
  - Somnolence [Unknown]
  - Heart rate increased [Unknown]
  - Oropharyngeal pain [Unknown]
  - Diarrhoea [Recovering/Resolving]
  - Dermatitis acneiform [Unknown]
  - Pyrexia [Unknown]
  - Rash [Unknown]
